FAERS Safety Report 16942901 (Version 3)
Quarter: 2019Q4

REPORT INFORMATION
  Report Type: Report from Study
  Country: PR (occurrence: PR)
  Receive Date: 20191021
  Receipt Date: 20191030
  Transmission Date: 20200122
  Serious: Yes (Hospitalization, Other)
  Sender: FDA-Public Use
  Company Number: PR-JNJFOC-20191024168

PATIENT
  Age: 70 Year
  Sex: Female

DRUGS (9)
  1. LEVOFLOXACIN. [Concomitant]
     Active Substance: LEVOFLOXACIN
  2. IMBRUVICA [Suspect]
     Active Substance: IBRUTINIB
     Dosage: 280 MG, QD
     Route: 048
     Dates: start: 20190719, end: 201910
  3. PREDNISONE. [Concomitant]
     Active Substance: PREDNISONE
  4. FUSION PLUS [Concomitant]
     Active Substance: IRON\VITAMIN B
  5. IMBRUVICA [Suspect]
     Active Substance: IBRUTINIB
     Indication: CHRONIC LYMPHOCYTIC LEUKAEMIA RECURRENT
     Dosage: 420 MG, QD
     Route: 048
     Dates: start: 20190503, end: 20190718
  6. EPOGEN [Concomitant]
     Active Substance: ERYTHROPOIETIN
  7. DOCUSATE SODIUM. [Concomitant]
     Active Substance: DOCUSATE SODIUM
  8. BONIVA [Concomitant]
     Active Substance: IBANDRONATE SODIUM
  9. MUCINEX [Concomitant]
     Active Substance: GUAIFENESIN

REACTIONS (7)
  - Seizure [Unknown]
  - Blood potassium decreased [Unknown]
  - Nausea [Unknown]
  - Brain oedema [Unknown]
  - Incorrect dose administered [Unknown]
  - Blood sodium decreased [Unknown]
  - Abdominal pain upper [Unknown]

NARRATIVE: CASE EVENT DATE: 20190719
